FAERS Safety Report 4753498-3 (Version None)
Quarter: 2005Q3

REPORT INFORMATION
  Report Type: 
  Country: None (occurrence: None)
  Receive Date: 20050826
  Receipt Date: 20050822
  Transmission Date: 20060218
  Serious: Yes (Other)
  Sender: FDA-Public Use
  Company Number: 200512483EU

PATIENT
  Sex: Male

DRUGS (1)
  1. NICODERM CQ [Suspect]
     Route: 062
     Dates: start: 20050728, end: 20050728

REACTIONS (6)
  - DIZZINESS [None]
  - DRUG WITHDRAWAL SYNDROME [None]
  - LOSS OF CONSCIOUSNESS [None]
  - OVERDOSE [None]
  - PALPITATIONS [None]
  - VOMITING [None]
